FAERS Safety Report 4886511-3 (Version None)
Quarter: 2005Q4

REPORT INFORMATION
  Report Type: 
  Country: None (occurrence: None)
  Receive Date: 20051220
  Receipt Date: 20050105
  Transmission Date: 20060501
  Serious: Yes (Other)
  Sender: FDA-Public Use
  Company Number: HQWYE422706JAN05

PATIENT
  Age: 59 Year
  Sex: Male
  Weight: 81.72 kg

DRUGS (13)
  1. EFFEXOR XR [Suspect]
     Indication: POST-TRAUMATIC STRESS DISORDER
     Dosage: SEE IMAGE
     Route: 048
     Dates: start: 20040101, end: 20040101
  2. EFFEXOR XR [Suspect]
     Indication: POST-TRAUMATIC STRESS DISORDER
     Dosage: SEE IMAGE
     Route: 048
     Dates: start: 20040701, end: 20040101
  3. EFFEXOR XR [Suspect]
     Indication: POST-TRAUMATIC STRESS DISORDER
     Dosage: SEE IMAGE
     Route: 048
     Dates: end: 20040701
  4. EFFEXOR XR [Suspect]
     Indication: POST-TRAUMATIC STRESS DISORDER
     Dosage: SEE IMAGE
     Route: 048
     Dates: start: 20040101, end: 20041101
  5. EFFEXOR XR [Suspect]
     Indication: POST-TRAUMATIC STRESS DISORDER
     Dosage: SEE IMAGE
     Route: 048
     Dates: start: 19950101
  6. REMERON [Concomitant]
  7. CLONAZEPAM [Concomitant]
  8. CLONIDINE [Concomitant]
  9. HYDROCHLOROTHIAZIDE [Concomitant]
  10. ... [Concomitant]
  11. ... [Concomitant]
  12. ... [Concomitant]
  13. .... [Concomitant]

REACTIONS (6)
  - ABNORMAL SLEEP-RELATED EVENT [None]
  - CRYING [None]
  - DRUG WITHDRAWAL SYNDROME [None]
  - INFLUENZA LIKE ILLNESS [None]
  - IRRITABILITY [None]
  - SELF-INJURIOUS IDEATION [None]
